FAERS Safety Report 21872189 (Version 1)
Quarter: 2023Q1

REPORT INFORMATION
  Report Type: Spontaneous
  Country: US (occurrence: None)
  Receive Date: 20230113
  Receipt Date: 20230113
  Transmission Date: 20230418
  Serious: Yes (unspecified)
  Sender: FDA-Public Use
  Company Number: None

PATIENT
  Age: 45 Year
  Sex: Male
  Weight: 55.7 kg

DRUGS (1)
  1. BUPRENORPHINE HYDROCHLORIDE\NALOXONE HYDROCHLORIDE [Suspect]
     Active Substance: BUPRENORPHINE HYDROCHLORIDE\NALOXONE HYDROCHLORIDE
     Indication: Drug dependence
     Dosage: OTHER QUANTITY : 8-2MG;?FREQUENCY : TWICE A DAY;?
     Route: 060

REACTIONS (7)
  - Headache [None]
  - Nausea [None]
  - Vomiting [None]
  - Retching [None]
  - Taste disorder [None]
  - Pneumothorax [None]
  - Product solubility abnormal [None]

NARRATIVE: CASE EVENT DATE: 20210119
